FAERS Safety Report 9631733 (Version 1)
Quarter: 2013Q4

REPORT INFORMATION
  Report Type: Spontaneous
  Country: IN (occurrence: None)
  Receive Date: 20131015
  Receipt Date: 20131015
  Transmission Date: 20140711
  Serious: Yes (Hospitalization, Disabling)
  Sender: FDA-Public Use
  Company Number: AUR-APL-2013-08533

PATIENT
  Age: 72 Year
  Sex: Female

DRUGS (1)
  1. ZOLPIDEM [Suspect]
     Indication: INSOMNIA

REACTIONS (17)
  - Incorrect dose administered [None]
  - Treatment noncompliance [None]
  - Somnolence [None]
  - Activities of daily living impaired [None]
  - Irritability [None]
  - Asthenia [None]
  - Asthenia [None]
  - Tremor [None]
  - Tremor [None]
  - Drug dependence [None]
  - Anxiety [None]
  - Psychomotor hyperactivity [None]
  - Disturbance in attention [None]
  - Dysphoria [None]
  - Pallor [None]
  - Blood pressure increased [None]
  - Bundle branch block right [None]
